FAERS Safety Report 23864708 (Version 1)
Quarter: 2024Q2

REPORT INFORMATION
  Report Type: Spontaneous
  Country: BR (occurrence: BR)
  Receive Date: 20240516
  Receipt Date: 20240516
  Transmission Date: 20240716
  Serious: Yes (Hospitalization)
  Sender: FDA-Public Use
  Company Number: BR-SA-2024SA132556

PATIENT
  Sex: Male

DRUGS (1)
  1. SABRIL [Suspect]
     Active Substance: VIGABATRIN
     Indication: Holoprosencephaly
     Dosage: 1.5 DF, TID
     Route: 065

REACTIONS (5)
  - Post-tussive vomiting [Unknown]
  - Hyponatraemia [Unknown]
  - Salivary hypersecretion [Unknown]
  - Priapism [Unknown]
  - Urinary tract infection [Unknown]

NARRATIVE: CASE EVENT DATE: 20230528
